FAERS Safety Report 6014463-1 (Version None)
Quarter: 2008Q4

REPORT INFORMATION
  Report Type: 
  Country: None (occurrence: None)
  Receive Date: 20081219
  Receipt Date: 20080701
  Transmission Date: 20090506
  Serious: No
  Sender: FDA-Public Use
  Company Number: A0735586A

PATIENT
  Age: 74 Year
  Sex: Male

DRUGS (6)
  1. AVODART [Suspect]
     Indication: BENIGN PROSTATIC HYPERPLASIA
     Dosage: 1CAP PER DAY
     Route: 048
  2. ALPRAZOLAM [Concomitant]
  3. PAROXETINE HCL [Concomitant]
  4. METOPROLOL SUCCINATE [Concomitant]
  5. FLOMAX [Concomitant]
  6. PREVACID [Concomitant]

REACTIONS (1)
  - DRUG ADMINISTRATION ERROR [None]
